FAERS Safety Report 9263012 (Version 2)
Quarter: 2013Q2

REPORT INFORMATION
  Report Type: Spontaneous
  Country: DE (occurrence: DE)
  Receive Date: 20130430
  Receipt Date: 20130521
  Transmission Date: 20140414
  Serious: Yes (Other)
  Sender: FDA-Public Use
  Company Number: DE-ROCHE-1218867

PATIENT
  Sex: Male

DRUGS (5)
  1. XOLAIR [Suspect]
     Indication: ASTHMA
     Route: 058
  2. PREDNISOLONE [Concomitant]
  3. FOSTAIR [Concomitant]
  4. SINGULAIR [Concomitant]
  5. BERODUAL [Concomitant]

REACTIONS (1)
  - Herpes zoster [Recovering/Resolving]
